FAERS Safety Report 14877003 (Version 4)
Quarter: 2018Q2

REPORT INFORMATION
  Report Type: Report from Study
  Country: US (occurrence: US)
  Receive Date: 20180510
  Receipt Date: 20180523
  Transmission Date: 20180711
  Serious: Yes (Death)
  Sender: FDA-Public Use
  Company Number: US-TEVA-2018-US-890302

PATIENT
  Age: 24 Year
  Sex: Male

DRUGS (4)
  1. ALPRAZOLAM. [Suspect]
     Active Substance: ALPRAZOLAM
     Route: 065
  2. MORPHINE [Concomitant]
     Active Substance: MORPHINE
     Route: 065
  3. DIAZEPAM. [Suspect]
     Active Substance: DIAZEPAM
     Route: 065
  4. TEMAZEPAM. [Suspect]
     Active Substance: TEMAZEPAM
     Route: 065

REACTIONS (1)
  - Toxicity to various agents [Fatal]
